FAERS Safety Report 8839982 (Version 1)
Quarter: 2012Q4

REPORT INFORMATION
  Report Type: 
  Country: US (occurrence: US)
  Receive Date: 20121015
  Receipt Date: 20121015
  Transmission Date: 20130627
  Serious: Yes (Other)
  Sender: FDA-Public Use
  Company Number: US-ASTRAZENECA-2012SE76582

PATIENT
  Age: 45 Year
  Sex: Female
  Weight: 77.1 kg

DRUGS (10)
  1. SEROQUEL [Suspect]
     Indication: BIPOLAR DISORDER
     Route: 048
  2. SEROQUEL [Suspect]
     Indication: BIPOLAR DISORDER
     Route: 048
  3. SEROQUEL [Suspect]
     Indication: BIPOLAR DISORDER
     Route: 048
  4. SEROQUEL [Suspect]
     Indication: BIPOLAR DISORDER
     Route: 048
  5. SEROQUEL [Suspect]
     Indication: BIPOLAR DISORDER
     Route: 048
  6. SEROQUEL [Suspect]
     Indication: BIPOLAR DISORDER
     Route: 048
  7. ATENOLOL [Concomitant]
     Indication: BLOOD PRESSURE
  8. LAMICTAL [Concomitant]
     Indication: BIPOLAR DISORDER
  9. GABAPENTIN [Concomitant]
     Indication: RESTLESS LEGS SYNDROME
  10. UNKNOWN THYROID MEDICATION [Concomitant]
     Indication: THYROID DISORDER

REACTIONS (15)
  - Congenital cystic kidney disease [Unknown]
  - Neurological symptom [Unknown]
  - Drug effect increased [Unknown]
  - Balance disorder [Unknown]
  - Grip strength decreased [Unknown]
  - Paranoia [Unknown]
  - Insomnia [Unknown]
  - Thyroid disorder [Unknown]
  - Cardiac disorder [Unknown]
  - Blood pressure abnormal [Unknown]
  - Fatigue [Unknown]
  - Weight increased [Unknown]
  - Restless legs syndrome [Unknown]
  - Somnolence [Unknown]
  - Intentional drug misuse [Unknown]
